FAERS Safety Report 10800298 (Version 1)
Quarter: 2015Q1

REPORT INFORMATION
  Report Type: Spontaneous
  Country: US (occurrence: US)
  Receive Date: 20150216
  Receipt Date: 20150216
  Transmission Date: 20150721
  Serious: No
  Sender: FDA-Public Use
  Company Number: US-ALLERGAN-1414672US

PATIENT
  Age: 33 Year
  Sex: Female

DRUGS (4)
  1. LAMICTAL [Concomitant]
     Active Substance: LAMOTRIGINE
     Indication: EPILEPSY
     Dosage: UNK UNK, QD
     Route: 048
     Dates: start: 2011
  2. RESTASIS [Suspect]
     Active Substance: CYCLOSPORINE
     Indication: DRY EYE
     Dosage: 2 GTT, QHS
     Route: 047
  3. PHENOBARBITAL. [Concomitant]
     Active Substance: PHENOBARBITAL
     Indication: EPILEPSY
     Dosage: UNK UNK, QD
     Route: 048
     Dates: start: 2011
  4. KLONOPIN [Concomitant]
     Active Substance: CLONAZEPAM
     Indication: EPILEPSY
     Dosage: UNK
     Route: 048
     Dates: start: 2011

REACTIONS (2)
  - Inappropriate schedule of drug administration [Unknown]
  - Dry eye [Not Recovered/Not Resolved]
